FAERS Safety Report 12990337 (Version 2)
Quarter: 2017Q1

REPORT INFORMATION
  Report Type: Spontaneous
  Country: US (occurrence: US)
  Receive Date: 20161201
  Receipt Date: 20170104
  Transmission Date: 20170428
  Serious: No
  Sender: FDA-Public Use
  Company Number: US-PFIZER INC-2016555925

PATIENT
  Age: 57 Year
  Sex: Female
  Weight: 73 kg

DRUGS (5)
  1. LISINOPRIL. [Concomitant]
     Active Substance: LISINOPRIL
     Indication: HYPERTENSION
     Dosage: 20 MG, 1X/DAY
  2. BYSTOLIC [Concomitant]
     Active Substance: NEBIVOLOL HYDROCHLORIDE
     Indication: BLOOD PRESSURE MEASUREMENT
     Dosage: UNK, 1X/DAY
  3. FENTANYL. [Concomitant]
     Active Substance: FENTANYL
     Indication: FOOT FRACTURE
     Dosage: 12.5 MG, APPLIED EVERY 3 DAYS
  4. HERCEPTIN [Concomitant]
     Active Substance: TRASTUZUMAB
     Indication: BREAST CANCER
     Dosage: UNK, EVERY 3 MONTHS
     Route: 042
  5. AROMASIN [Suspect]
     Active Substance: EXEMESTANE
     Indication: BREAST CANCER STAGE IV
     Dosage: 25 MG, 1X/DAY WITH A MEAL
     Route: 048
     Dates: start: 2014

REACTIONS (3)
  - Diarrhoea [Unknown]
  - Neoplasm recurrence [Unknown]
  - Abdominal pain upper [Unknown]
